FAERS Safety Report 26010104 (Version 1)
Quarter: 2025Q4

REPORT INFORMATION
  Report Type: Spontaneous
  Country: EU (occurrence: EU)
  Receive Date: 20251107
  Receipt Date: 20251107
  Transmission Date: 20260118
  Serious: Yes (Other)
  Sender: TEVA
  Company Number: EU-TEVA-VS-3389151

PATIENT
  Age: 71 Year
  Sex: Female

DRUGS (8)
  1. OXALIPLATIN [Suspect]
     Active Substance: OXALIPLATIN
     Indication: Adenocarcinoma pancreas
     Dosage: ADJUVANT CHEMOTHERAPY
     Route: 065
     Dates: end: 202202
  2. LEUCOVORIN [Suspect]
     Active Substance: LEUCOVORIN\LEUCOVORIN CALCIUM
     Indication: Adenocarcinoma pancreas
     Dosage: SECOND LINE OF PALLIATIVE THERAPY
     Route: 065
     Dates: start: 202405
  3. LEUCOVORIN [Suspect]
     Active Substance: LEUCOVORIN\LEUCOVORIN CALCIUM
     Indication: Adenocarcinoma pancreas
     Dosage: LEUKOVORIN,  ADJUVANT CHEMOTHERAPY
     Route: 065
     Dates: end: 202202
  4. PACLITAXEL [Suspect]
     Active Substance: PACLITAXEL
     Indication: Adenocarcinoma pancreas
     Dosage: PAKLITAXEL, FIRST-LINE SYSTEMIC PALLIATIVE THERAPY
     Route: 065
     Dates: start: 202302
  5. FLUOROURACIL [Suspect]
     Active Substance: FLUOROURACIL
     Indication: Adenocarcinoma pancreas
     Dosage: ADJUVANT CHEMOTHERAPY
     Route: 065
     Dates: end: 202202
  6. FLUOROURACIL [Suspect]
     Active Substance: FLUOROURACIL
     Indication: Adenocarcinoma pancreas
     Dosage: SECOND LINE OF PALLIATIVE THERAPY
     Route: 065
     Dates: start: 202405
  7. GEMCITABINE [Suspect]
     Active Substance: GEMCITABINE
     Indication: Adenocarcinoma pancreas
     Dosage: 12000 MG/M, FIRST-LINE SYSTEMIC PALLIATIVE THERAPY
     Route: 065
  8. IRINOTECAN HYDROCHLORIDE [Suspect]
     Active Substance: IRINOTECAN HYDROCHLORIDE
     Indication: Adenocarcinoma pancreas
     Dosage: SECOND LINE OF PALLIATIVE THERAPY, PEGYLATED LIPOSOMAL IRINOTECAN
     Route: 065
     Dates: start: 202405

REACTIONS (6)
  - Myelosuppression [Unknown]
  - Treatment failure [Unknown]
  - Fatigue [Unknown]
  - Neutropenia [Not Recovered/Not Resolved]
  - Neurotoxicity [Unknown]
  - Anaemia [Not Recovered/Not Resolved]
